FAERS Safety Report 7367138-0 (Version None)
Quarter: 2011Q1

REPORT INFORMATION
  Report Type: 
  Country: None (occurrence: None)
  Receive Date: 20110322
  Receipt Date: 20110315
  Transmission Date: 20110831
  Serious: Yes (Hospitalization)
  Sender: FDA-Public Use
  Company Number: US-PFIZER INC-2011057581

PATIENT
  Sex: Female
  Weight: 10.8 kg

DRUGS (2)
  1. SIROLIMUS [Suspect]
     Indication: ANGIOPATHY
     Dosage: 0.7 ML, 2X/DAY
     Dates: start: 20101105
  2. BACTRIM [Concomitant]
     Indication: INFECTION
     Dosage: UNK
     Route: 048
     Dates: start: 20100511

REACTIONS (1)
  - INFECTION [None]
